FAERS Safety Report 6108296-5 (Version None)
Quarter: 2009Q1

REPORT INFORMATION
  Report Type: 
  Country: None (occurrence: None)
  Receive Date: 20090309
  Receipt Date: 20090304
  Transmission Date: 20090719
  Serious: Yes (Disabling, Other)
  Sender: FDA-Public Use
  Company Number: CN-ASTRAZENECA-2008AP09101

PATIENT
  Age: 52 Year
  Sex: Male

DRUGS (2)
  1. IRESSA [Suspect]
     Indication: LUNG NEOPLASM MALIGNANT
     Route: 048
     Dates: start: 20080701, end: 20081113
  2. IRESSA [Suspect]
     Route: 048

REACTIONS (2)
  - OPTIC NEURITIS [None]
  - RETINAL HAEMORRHAGE [None]
